FAERS Safety Report 6849000-2 (Version None)
Quarter: 2010Q3

REPORT INFORMATION
  Report Type: 
  Country: None (occurrence: None)
  Receive Date: 20100716
  Receipt Date: 20070925
  Transmission Date: 20110219
  Serious: No
  Sender: FDA-Public Use
  Company Number: US-PFIZER INC-2007081346

PATIENT
  Sex: Female
  Weight: 68.181 kg

DRUGS (7)
  1. CHANTIX [Suspect]
     Indication: SMOKING CESSATION THERAPY
     Route: 048
     Dates: start: 20070827
  2. PERCOCET [Concomitant]
  3. OXYCONTIN [Concomitant]
  4. ZOLPIDEM TARTRATE [Concomitant]
  5. PREMARIN [Concomitant]
  6. OXYBUTYNIN CHLORIDE [Concomitant]
  7. PREVACID [Concomitant]

REACTIONS (2)
  - NAUSEA [None]
  - VOMITING [None]
